FAERS Safety Report 4627231-X (Version None)
Quarter: 2005Q2

REPORT INFORMATION
  Report Type: 
  Country: None (occurrence: None)
  Receive Date: 20050401
  Receipt Date: 20050401
  Transmission Date: 20051028
  Serious: Yes (Life-Threatening, Hospitalization, Disabling)
  Sender: FDA-Public Use
  Company Number: None

PATIENT
  Age: 53 Year
  Sex: Male
  Weight: 84 kg

DRUGS (13)
  1. FOSINOPRIL SODIUM [Suspect]
     Indication: HYPERTENSION
     Dosage: 10 MG DAILY ORAL
     Route: 048
     Dates: start: 20050105, end: 20050316
  2. GLUCOPHAGE [Concomitant]
  3. OXAPROZIN [Concomitant]
  4. FUROSEMIDE [Concomitant]
  5. METOPROLOL TARTRATE [Concomitant]
  6. PLAVIX [Concomitant]
  7. METHOTREXATE [Concomitant]
  8. PRILOSEC [Concomitant]
  9. ASPIRIN [Concomitant]
  10. NIASPAN [Concomitant]
  11. NORVASC [Concomitant]
  12. LIPITOR [Concomitant]
  13. HUMIRA [Concomitant]

REACTIONS (3)
  - ACUTE RESPIRATORY DISTRESS SYNDROME [None]
  - PANCREATITIS [None]
  - SYSTEMIC INFLAMMATORY RESPONSE SYNDROME [None]
